FAERS Safety Report 8503561-6 (Version None)
Quarter: 2012Q3

REPORT INFORMATION
  Report Type: 
  Country: None (occurrence: None)
  Receive Date: 20120711
  Receipt Date: 20101203
  Transmission Date: 20120928
  Serious: Yes (Other)
  Sender: FDA-Public Use
  Company Number: CO-PFIZER INC-2012165302

PATIENT
  Age: 59 Year
  Sex: Female

DRUGS (5)
  1. OLMESARTAN MEDOXOMIL [Suspect]
     Dosage: 20 MG, 1X/DAY
     Route: 048
  2. NORVASC [Suspect]
     Dosage: 5 MG, 2X/DAY
     Route: 048
  3. METFORMIN [Concomitant]
     Dosage: 850 MG, 1X/DAY
     Route: 048
  4. GLIBENCLAMIDE [Concomitant]
     Dosage: 5 MG, 2X/DAY
     Route: 048
  5. LIPITOR [Suspect]
     Dosage: 10 MG, 1X/DAY
     Route: 048

REACTIONS (1)
  - HYPERTENSIVE EMERGENCY [None]
